FAERS Safety Report 10432173 (Version 2)
Quarter: 2014Q3

REPORT INFORMATION
  Report Type: Spontaneous
  Country: US (occurrence: US)
  Receive Date: 20140905
  Receipt Date: 20140912
  Transmission Date: 20150326
  Serious: Yes (Other)
  Sender: FDA-Public Use
  Company Number: US-ASTRAZENECA-2014SE65769

PATIENT
  Sex: Male

DRUGS (1)
  1. SEROQUEL XR [Suspect]
     Active Substance: QUETIAPINE FUMARATE
     Indication: BIPOLAR DISORDER
     Dosage: 400MG NR
     Route: 048

REACTIONS (8)
  - Neuroleptic malignant syndrome [Recovered/Resolved]
  - Tachycardia [Recovered/Resolved]
  - Muscle rigidity [Recovered/Resolved]
  - Autonomic nervous system imbalance [Recovered/Resolved]
  - Pyrexia [Recovered/Resolved]
  - Hypertension [Recovered/Resolved]
  - Blood creatine phosphokinase increased [Recovered/Resolved]
  - Urinary incontinence [Recovered/Resolved]
